FAERS Safety Report 25982396 (Version 2)
Quarter: 2025Q4

REPORT INFORMATION
  Report Type: Spontaneous
  Country: EU (occurrence: EU)
  Receive Date: 20251031
  Receipt Date: 20251107
  Transmission Date: 20260118
  Serious: Yes (Death, Other)
  Sender: ROCHE
  Company Number: None

PATIENT
  Age: 43 Year
  Sex: Male

DRUGS (2)
  1. BEVACIZUMAB [Suspect]
     Active Substance: BEVACIZUMAB
     Indication: Colorectal adenocarcinoma
     Dosage: UNK
     Route: 065
  2. FLUOROURACIL\LEUCOVORIN CALCIUM\OXALIPLATIN [Suspect]
     Active Substance: FLUOROURACIL\LEUCOVORIN CALCIUM\OXALIPLATIN
     Indication: Rectal adenocarcinoma
     Route: 065

REACTIONS (6)
  - Tumour lysis syndrome [Unknown]
  - Colorectal cancer metastatic [Unknown]
  - Metastases to liver [Unknown]
  - Disease progression [Fatal]
  - Drug tolerance decreased [Unknown]
  - Drug ineffective [Unknown]
